FAERS Safety Report 14570429 (Version 1)
Quarter: 2018Q1

REPORT INFORMATION
  Report Type: Spontaneous
  Country: FR (occurrence: FR)
  Receive Date: 20180226
  Receipt Date: 20180226
  Transmission Date: 20180509
  Serious: Yes (Life-Threatening)
  Sender: FDA-Public Use
  Company Number: FR-ABBVIE-18S-056-2266760-00

PATIENT
  Age: 31 Year
  Sex: Female
  Weight: 86 kg

DRUGS (3)
  1. ULTIVA [Suspect]
     Active Substance: REMIFENTANIL HYDROCHLORIDE
     Indication: ANAESTHESIA
     Route: 042
     Dates: start: 20180205, end: 20180205
  2. SEVORANE [Suspect]
     Active Substance: SEVOFLURANE
     Indication: ANAESTHESIA
     Route: 055
     Dates: start: 20180205, end: 20180205
  3. PROPOFOL PANPHARMA [Suspect]
     Active Substance: PROPOFOL
     Indication: ANAESTHESIA
     Route: 042
     Dates: start: 20180205, end: 20180205

REACTIONS (3)
  - Papule [Recovered/Resolved]
  - Anaphylactic shock [Recovered/Resolved]
  - Eyelid oedema [Recovered/Resolved]

NARRATIVE: CASE EVENT DATE: 20180205
